FAERS Safety Report 10159960 (Version 1)
Quarter: 2014Q2

REPORT INFORMATION
  Report Type: Spontaneous
  Country: US (occurrence: US)
  Receive Date: 20140508
  Receipt Date: 20140508
  Transmission Date: 20141212
  Serious: No
  Sender: FDA-Public Use
  Company Number: US-GLAXOSMITHKLINE-A1045321A

PATIENT
  Age: 29 Year
  Sex: Female

DRUGS (2)
  1. TYKERB [Suspect]
     Indication: BREAST CANCER STAGE IV
     Dosage: 1250MG PER DAY
     Route: 048
     Dates: start: 20130722, end: 20130829
  2. XELODA [Suspect]
     Indication: BREAST CANCER STAGE IV
     Dosage: 1500MG SEE DOSAGE TEXT
     Dates: start: 20130722, end: 20130829

REACTIONS (2)
  - Vomiting [Recovered/Resolved]
  - Nausea [Recovered/Resolved]
